FAERS Safety Report 7718743-0 (Version None)
Quarter: 2011Q3

REPORT INFORMATION
  Report Type: 
  Country: None (occurrence: None)
  Receive Date: 20110830
  Receipt Date: 20110819
  Transmission Date: 20111222
  Serious: Yes (Hospitalization, Other)
  Sender: FDA-Public Use
  Company Number: US-BAYER-2011-005966

PATIENT
  Age: 19 Year
  Sex: Female
  Weight: 54.422 kg

DRUGS (4)
  1. PRENATAL VITAMINS [VIT C,B5,B12,D2,B3,B6,RETINOL PALMIT,B2,B1 MONO [Concomitant]
     Dosage: UNK
     Dates: start: 20060301, end: 20070101
  2. YASMIN [Suspect]
     Indication: PREMENSTRUAL SYNDROME
     Dosage: UNK
     Dates: start: 20060301, end: 20070101
  3. CALCIUM CARBONATE [Concomitant]
     Dosage: UNK
     Dates: start: 20060101, end: 20070101
  4. YASMIN [Suspect]
     Indication: CONTRACEPTION

REACTIONS (4)
  - PULMONARY EMBOLISM [None]
  - PAIN [None]
  - ANXIETY [None]
  - EMOTIONAL DISTRESS [None]
